FAERS Safety Report 6978451-0 (Version None)
Quarter: 2010Q3

REPORT INFORMATION
  Report Type: 
  Country: None (occurrence: None)
  Receive Date: 20100913
  Receipt Date: 20100903
  Transmission Date: 20110219
  Serious: Yes (Other)
  Sender: FDA-Public Use
  Company Number: US-AMGEN-US339484

PATIENT
  Sex: Female
  Weight: 57.7 kg

DRUGS (5)
  1. NPLATE [Suspect]
     Indication: IDIOPATHIC THROMBOCYTOPENIC PURPURA
     Route: 058
     Dates: start: 20080918, end: 20100713
  2. PLAQUENIL [Concomitant]
     Route: 065
  3. PREMARIN [Concomitant]
     Route: 065
  4. UNSPECIFIED THYROID MEDICATION [Concomitant]
     Route: 065
  5. SELENIUM [Concomitant]

REACTIONS (14)
  - ABDOMINAL DISCOMFORT [None]
  - ABDOMINAL PAIN [None]
  - ARTHRALGIA [None]
  - CONSTIPATION [None]
  - CRYING [None]
  - DIARRHOEA [None]
  - DRUG INTOLERANCE [None]
  - FALL [None]
  - FATIGUE [None]
  - HEAD INJURY [None]
  - INSOMNIA [None]
  - MIGRAINE [None]
  - NAUSEA [None]
  - SUBDURAL HAEMATOMA [None]
